FAERS Safety Report 5338598-1 (Version None)
Quarter: 2007Q2

REPORT INFORMATION
  Report Type: 
  Country: None (occurrence: None)
  Receive Date: 20070322
  Receipt Date: 20060811
  Transmission Date: 20071010
  Serious: Yes (Other)
  Sender: FDA-Public Use
  Company Number: 200612275BCC

PATIENT
  Age: 67 Year
  Sex: Female
  Weight: 104.3273 kg

DRUGS (2)
  1. ALEVE (CAPLET) [Suspect]
     Indication: DRUG USE FOR UNKNOWN INDICATION
     Dosage: 220 MG, ONCE, ORAL
     Route: 048
     Dates: start: 20060514
  2. GLYBURIDE [Concomitant]

REACTIONS (7)
  - DYSPNOEA [None]
  - EYE IRRITATION [None]
  - HEADACHE [None]
  - HYPERSENSITIVITY [None]
  - NERVOUSNESS [None]
  - PRURITUS [None]
  - RASH GENERALISED [None]
